FAERS Safety Report 23449230 (Version 1)
Quarter: 2024Q1

REPORT INFORMATION
  Report Type: Spontaneous
  Country: DE (occurrence: DE)
  Receive Date: 20240129
  Receipt Date: 20240129
  Transmission Date: 20240410
  Serious: Yes (Other)
  Sender: FDA-Public Use
  Company Number: DE-AUROBINDO-AUR-APL-2023-074311

PATIENT
  Age: 2 Year
  Sex: Male

DRUGS (8)
  1. MELATONIN [Suspect]
     Active Substance: MELATONIN
     Indication: Sleep deficit
     Dosage: UNK
     Route: 065
  2. TACROLIMUS [Concomitant]
     Active Substance: TACROLIMUS
     Indication: Dermatitis
     Dosage: UNK
     Route: 061
  3. TACROLIMUS [Concomitant]
     Active Substance: TACROLIMUS
     Indication: Symptomatic treatment
  4. PREDNICARBATE [Concomitant]
     Active Substance: PREDNICARBATE
     Indication: Dermatitis
     Dosage: UNK
     Route: 061
  5. PREDNICARBATE [Concomitant]
     Active Substance: PREDNICARBATE
     Indication: Skin weeping
  6. PREDNICARBATE [Concomitant]
     Active Substance: PREDNICARBATE
     Indication: Symptomatic treatment
  7. PIMECROLIMUS [Concomitant]
     Active Substance: PIMECROLIMUS
     Indication: Dermatitis
     Dosage: UNK
     Route: 061
  8. PIMECROLIMUS [Concomitant]
     Active Substance: PIMECROLIMUS
     Indication: Symptomatic treatment

REACTIONS (1)
  - Drug ineffective [Unknown]
